FAERS Safety Report 11155152 (Version 1)
Quarter: 2015Q2

REPORT INFORMATION
  Report Type: Spontaneous
  Country: US (occurrence: US)
  Receive Date: 20150602
  Receipt Date: 20150602
  Transmission Date: 20150821
  Serious: Yes (Other)
  Sender: FDA-Public Use
  Company Number: US-AMGEN-USASP2015052217

PATIENT

DRUGS (1)
  1. BLINCYTO [Suspect]
     Active Substance: BLINATUMOMAB
     Indication: PRODUCT USED FOR UNKNOWN INDICATION
     Dosage: 18 MUG, UNK
     Route: 065

REACTIONS (3)
  - Incorrect dose administered [Unknown]
  - Atrial fibrillation [Recovering/Resolving]
  - Hepatic enzyme increased [Recovering/Resolving]
